FAERS Safety Report 7369780-X (Version None)
Quarter: 2011Q1

REPORT INFORMATION
  Report Type: 
  Country: None (occurrence: None)
  Receive Date: 20110323
  Receipt Date: 20110318
  Transmission Date: 20110831
  Serious: Yes (Death, Other)
  Sender: FDA-Public Use
  Company Number: IN-GENZYME-THYM-1002363

PATIENT

DRUGS (4)
  1. MYCOPHENOLATE MEFETIL [Concomitant]
     Indication: PRODUCT USED FOR UNKNOWN INDICATION
     Route: 065
  2. TACROLIMUS [Concomitant]
     Indication: PRODUCT USED FOR UNKNOWN INDICATION
     Route: 065
  3. STEROIDS [Concomitant]
     Indication: PRODUCT USED FOR UNKNOWN INDICATION
     Route: 065
  4. THYMOGLOBULIN [Suspect]
     Indication: KIDNEY TRANSPLANT REJECTION
     Route: 042

REACTIONS (5)
  - MYCOTIC ANEURYSM [None]
  - ACINETOBACTER INFECTION [None]
  - RENAL TUBULAR NECROSIS [None]
  - ILIAC ARTERY THROMBOSIS [None]
  - SEPTIC SHOCK [None]
